FAERS Safety Report 4586634-2 (Version None)
Quarter: 2005Q1

REPORT INFORMATION
  Report Type: 
  Country: None (occurrence: None)
  Receive Date: 20050218
  Receipt Date: 20040819
  Transmission Date: 20050727
  Serious: No
  Sender: FDA-Public Use
  Company Number: US-BRISTOL-MYERS SQUIBB COMPANY-12677423

PATIENT
  Age: 61 Year
  Sex: Female
  Weight: 60 kg

DRUGS (10)
  1. PACLITAXEL [Suspect]
     Indication: NON-SMALL CELL LUNG CANCER
     Dates: start: 20040526
  2. CARBOPLATIN [Suspect]
     Indication: NON-SMALL CELL LUNG CANCER
     Dates: start: 20040526
  3. ARANESP [Suspect]
     Indication: ANAEMIA OF MALIGNANT DISEASE
     Dosage: SC/IV
     Dates: start: 20040526
  4. LEVOFLOXACIN [Concomitant]
  5. ROFECOXIB [Concomitant]
  6. ALBUTEROL SULFATE [Concomitant]
  7. GATIFLOXACIN [Concomitant]
  8. PROCHLORPERAZINE [Concomitant]
  9. CIMETIDINE [Concomitant]
     Dates: start: 20040326
  10. DEXAMETHASONE [Concomitant]
     Dates: start: 20040526

REACTIONS (1)
  - DEEP VEIN THROMBOSIS [None]
